FAERS Safety Report 8387186-1 (Version None)
Quarter: 2012Q2

REPORT INFORMATION
  Report Type: 
  Country: None (occurrence: None)
  Receive Date: 20120525
  Receipt Date: 20120330
  Transmission Date: 20120825
  Serious: Yes (Other)
  Sender: FDA-Public Use
  Company Number: US-ROCHE-1043669

PATIENT
  Sex: Male

DRUGS (4)
  1. RIBAVIRIN [Suspect]
     Indication: HEPATITIS C
     Dosage: FOR 36 WEEK LENGTH OF THERAPY
     Route: 048
     Dates: start: 20120211
  2. BOCEPREVIR [Suspect]
     Indication: HEPATITIS C
     Route: 048
     Dates: start: 20120310
  3. PEGASYS [Suspect]
     Indication: HEPATITIS C
     Route: 058
     Dates: start: 20120211
  4. PEGASYS [Suspect]

REACTIONS (9)
  - ASTHENIA [None]
  - ANURIA [None]
  - STOMATITIS [None]
  - HEADACHE [None]
  - LIP SWELLING [None]
  - APHAGIA [None]
  - URTICARIA [None]
  - PYREXIA [None]
  - RENAL PAIN [None]
